FAERS Safety Report 20863027 (Version 1)
Quarter: 2022Q2

REPORT INFORMATION
  Report Type: Spontaneous
  Country: ES (occurrence: ES)
  Receive Date: 20220523
  Receipt Date: 20220523
  Transmission Date: 20220721
  Serious: Yes (Death)
  Sender: FDA-Public Use
  Company Number: ES-NOVARTISPH-NVSC2022ES115742

PATIENT
  Age: 79 Year
  Sex: Female

DRUGS (1)
  1. KISQALI [Suspect]
     Active Substance: RIBOCICLIB
     Indication: Breast cancer metastatic
     Dosage: 600 MG
     Route: 048
     Dates: start: 20211221, end: 20220419

REACTIONS (6)
  - Pneumonitis [Fatal]
  - Oedema [Fatal]
  - Pneumonia [Fatal]
  - Dyspnoea [Fatal]
  - Cough [Fatal]
  - Pyrexia [Fatal]
